FAERS Safety Report 24647081 (Version 1)
Quarter: 2024Q4

REPORT INFORMATION
  Report Type: Spontaneous
  Country: JP (occurrence: JP)
  Receive Date: 20241121
  Receipt Date: 20241121
  Transmission Date: 20250115
  Serious: Yes (Other)
  Sender: ACCORD
  Company Number: JP-Accord-456435

PATIENT
  Age: 27 Year
  Sex: Female

DRUGS (4)
  1. SOLIFENACIN SUCCINATE [Suspect]
     Active Substance: SOLIFENACIN SUCCINATE
     Indication: Hypertonic bladder
     Route: 048
  2. PREDNISOLONE [Suspect]
     Active Substance: PREDNISOLONE
     Indication: Hypertonic bladder
  3. PREDNISOLONE [Suspect]
     Active Substance: PREDNISOLONE
     Indication: Urinary tract disorder
  4. SOLIFENACIN SUCCINATE [Suspect]
     Active Substance: SOLIFENACIN SUCCINATE
     Indication: Urinary tract disorder
     Route: 048

REACTIONS (3)
  - Hypotonic urinary bladder [Unknown]
  - Residual urine volume increased [Unknown]
  - Treatment failure [Unknown]
